FAERS Safety Report 19870869 (Version 2)
Quarter: 2021Q3

REPORT INFORMATION
  Report Type: Spontaneous
  Country: US (occurrence: US)
  Receive Date: 20210923
  Receipt Date: 20210924
  Transmission Date: 20211014
  Serious: Yes (Death)
  Sender: FDA-Public Use
  Company Number: US-CHIESI-2021CHF04671

PATIENT
  Age: 37 Year
  Sex: Female
  Weight: 34 kg

DRUGS (3)
  1. FERRIPROX [Suspect]
     Active Substance: DEFERIPRONE
     Indication: THALASSAEMIA BETA
  2. FERRIPROX [Suspect]
     Active Substance: DEFERIPRONE
     Indication: HAEMOCHROMATOSIS
     Dosage: 1500 MILLIGRAM, BID
     Route: 048
     Dates: start: 20201023, end: 20210910
  3. FERRIPROX [Suspect]
     Active Substance: DEFERIPRONE
     Indication: TRANSFUSION
     Dosage: UNK
     Route: 048
     Dates: start: 20200411

REACTIONS (3)
  - Condition aggravated [Fatal]
  - Cardiac failure [Fatal]
  - Iron overload [Fatal]

NARRATIVE: CASE EVENT DATE: 20210910
